FAERS Safety Report 19520085 (Version 1)
Quarter: 2021Q3

REPORT INFORMATION
  Report Type: Spontaneous
  Country: US (occurrence: US)
  Receive Date: 20210712
  Receipt Date: 20210712
  Transmission Date: 20211014
  Serious: No
  Sender: FDA-Public Use
  Company Number: US-SECURA BIO, INC.-2020US008985

PATIENT

DRUGS (1)
  1. COPIKTRA [Suspect]
     Active Substance: DUVELISIB
     Indication: B-CELL LYMPHOMA
     Dosage: 15 MG, BID
     Route: 048
     Dates: start: 20201003

REACTIONS (10)
  - Fatigue [Unknown]
  - Diarrhoea [Unknown]
  - Anger [Unknown]
  - Night sweats [Unknown]
  - Product dose omission issue [Unknown]
  - Chromaturia [Unknown]
  - Myalgia [Unknown]
  - Pollakiuria [Unknown]
  - Prescribed underdose [Not Recovered/Not Resolved]
  - Pyrexia [Recovering/Resolving]

NARRATIVE: CASE EVENT DATE: 2020
